FAERS Safety Report 12438168 (Version 1)
Quarter: 2016Q2

REPORT INFORMATION
  Report Type: Spontaneous
  Country: US (occurrence: US)
  Receive Date: 20160606
  Receipt Date: 20160606
  Transmission Date: 20160815
  Serious: No
  Sender: FDA-Public Use
  Company Number: US-BAYER-2016-103433

PATIENT
  Sex: Female

DRUGS (2)
  1. MIRALAX [Suspect]
     Active Substance: POLYETHYLENE GLYCOL 3350
     Dosage: UNK, QD
     Route: 065
  2. MIRAFIBER POWDER [Suspect]
     Active Substance: METHYLCELLULOSES
     Dosage: UNK, QD

REACTIONS (2)
  - Unevaluable event [None]
  - Product use issue [None]
